FAERS Safety Report 4640591-9 (Version None)
Quarter: 2005Q2

REPORT INFORMATION
  Report Type: 
  Country: None (occurrence: None)
  Receive Date: 20050419
  Receipt Date: 20050407
  Transmission Date: 20051028
  Serious: Yes (Death, Hospitalization)
  Sender: FDA-Public Use
  Company Number: 213677

PATIENT
  Age: 76 Year
  Sex: Male

DRUGS (5)
  1. MABTHERA (RITUXIMAB) CONC FOR SOLUTION FOR INFUSION [Suspect]
     Indication: NON-HODGKIN'S LYMPHOMA
     Dosage: 675 MG, INTRAVENOUS
     Route: 042
     Dates: start: 20030313, end: 20030313
  2. ONCOVIN [Suspect]
     Indication: NON-HODGKIN'S LYMPHOMA
     Dosage: 2 MG, INTRAVENOUS
     Route: 042
     Dates: start: 20030313, end: 20030313
  3. DOXORUBICIN HYDROCHLORIDE [Suspect]
     Indication: NON-HODGKIN'S LYMPHOMA
     Dosage: 90 MG, INTRAVENOUS
     Route: 042
     Dates: start: 20030313, end: 20030313
  4. CYCLOPHOSPHAMIDE [Suspect]
     Indication: NON-HODGKIN'S LYMPHOMA
     Dosage: 1350 MG, INTRAVENOUS
     Route: 042
     Dates: start: 20030313, end: 20030313
  5. PREDNISONE TAB [Suspect]
     Indication: NON-HODGKIN'S LYMPHOMA
     Dosage: 120 MG, INTRVENOUS
     Route: 042
     Dates: start: 20030313, end: 20030317

REACTIONS (5)
  - AGRANULOCYTOSIS [None]
  - ASPERGILLOSIS [None]
  - PYREXIA [None]
  - RESPIRATORY DISTRESS [None]
  - SHOCK [None]
